FAERS Safety Report 7803214-3 (Version None)
Quarter: 2011Q4

REPORT INFORMATION
  Report Type: 
  Country: None (occurrence: None)
  Receive Date: 20111007
  Receipt Date: 20111005
  Transmission Date: 20120403
  Serious: Yes (Death)
  Sender: FDA-Public Use
  Company Number: JP-EISAI INC-E2020-09666-CLI-JP

PATIENT
  Sex: Male
  Weight: 49 kg

DRUGS (4)
  1. ARICEPT [Suspect]
     Indication: DEMENTIA ALZHEIMER'S TYPE
     Route: 048
     Dates: start: 20090205, end: 20100202
  2. ARICEPT [Suspect]
     Route: 048
     Dates: start: 20100203, end: 20110311
  3. RISPERDAL [Concomitant]
     Indication: DEMENTIA ALZHEIMER'S TYPE
     Dosage: 1 ML
     Route: 048
     Dates: start: 20051224, end: 20110311
  4. GRAMALIL [Concomitant]
     Indication: DEMENTIA ALZHEIMER'S TYPE
     Dosage: 150 MG
     Route: 048
     Dates: start: 20100302, end: 20110311

REACTIONS (1)
  - CARDIAC ARREST [None]
